FAERS Safety Report 14308058 (Version 1)
Quarter: 2017Q4

REPORT INFORMATION
  Report Type: Spontaneous
  Country: US (occurrence: US)
  Receive Date: 20171219
  Receipt Date: 20171219
  Transmission Date: 20180321
  Serious: Yes (Other)
  Sender: FDA-Public Use
  Company Number: None

PATIENT
  Age: 63 Year
  Sex: Male
  Weight: 106.6 kg

DRUGS (1)
  1. FERRLECIT [Suspect]
     Active Substance: SODIUM FERRIC GLUCONATE COMPLEX
     Indication: IRON DEFICIENCY ANAEMIA
     Route: 042
     Dates: start: 20171218, end: 20171218

REACTIONS (7)
  - Paraesthesia [None]
  - Blood glucose increased [None]
  - Nausea [None]
  - Heart rate increased [None]
  - Fatigue [None]
  - Hyperhidrosis [None]
  - Drug intolerance [None]

NARRATIVE: CASE EVENT DATE: 20171218
